FAERS Safety Report 7865070-7 (Version None)
Quarter: 2011Q4

REPORT INFORMATION
  Report Type: 
  Country: None (occurrence: None)
  Receive Date: 20111028
  Receipt Date: 20101008
  Transmission Date: 20120403
  Serious: No
  Sender: FDA-Public Use
  Company Number: US-GLAXOSMITHKLINE-A0885667A

PATIENT
  Sex: Male

DRUGS (6)
  1. PROAIR HFA [Concomitant]
  2. FAMCICLOVIR [Concomitant]
  3. ADVAIR DISKUS 100/50 [Suspect]
     Indication: PRODUCT USED FOR UNKNOWN INDICATION
     Route: 055
  4. VENTOLIN [Concomitant]
  5. TRAZODONE HYDROCHLORIDE [Concomitant]
  6. SIMVASTATIN [Concomitant]

REACTIONS (2)
  - DRUG INEFFECTIVE [None]
  - PRODUCT QUALITY ISSUE [None]
